FAERS Safety Report 9045796 (Version 1)
Quarter: 2013Q1

REPORT INFORMATION
  Report Type: Spontaneous
  Country: US (occurrence: US)
  Receive Date: 20130201
  Receipt Date: 20130201
  Transmission Date: 20140127
  Serious: No
  Sender: FDA-Public Use
  Company Number: US-ABBOTT-12P-163-1017696-00

PATIENT
  Age: 46 None
  Sex: Male

DRUGS (1)
  1. HUMIRA [Suspect]
     Indication: PSORIATIC ARTHROPATHY
     Dates: start: 2007

REACTIONS (3)
  - Wrong technique in drug usage process [Not Recovered/Not Resolved]
  - Incorrect dose administered [Recovered/Resolved]
  - Injection site bruising [Not Recovered/Not Resolved]
